FAERS Safety Report 8077569-1 (Version None)
Quarter: 2012Q1

REPORT INFORMATION
  Report Type: 
  Country: None (occurrence: None)
  Receive Date: 20120127
  Receipt Date: 20120125
  Transmission Date: 20120608
  Serious: Yes (Life-Threatening, Hospitalization, Other)
  Sender: FDA-Public Use
  Company Number: DE-B.I. PHARMACEUTICALS,INC./RIDGEFIELD-2011-DE-06325DE

PATIENT
  Sex: Male
  Weight: 83 kg

DRUGS (5)
  1. PRADAXA [Suspect]
     Indication: ATRIAL FIBRILLATION
     Dosage: 220 MG
     Route: 048
     Dates: start: 20110719, end: 20110826
  2. BISOPROLOL FUMARATE [Concomitant]
     Dosage: 5 MG
     Dates: start: 20070101
  3. SIMVASTATIN [Concomitant]
     Dosage: 40 MG
     Dates: start: 20070101
  4. TORSEMIDE [Concomitant]
     Dosage: 10 MG
     Dates: start: 20090101
  5. AMIODARONE HCL [Concomitant]
     Dosage: 200 MG
     Dates: start: 20090101

REACTIONS (24)
  - RENAL FAILURE [None]
  - INTESTINAL ISCHAEMIA [None]
  - BLOOD PRESSURE DECREASED [None]
  - ENTEROCOCCAL INFECTION [None]
  - INFECTIOUS PERITONITIS [None]
  - VOMITING [None]
  - BACK PAIN [None]
  - DYSPNOEA [None]
  - GALLBLADDER DISORDER [None]
  - DEHYDRATION [None]
  - HAEMORRHAGE [None]
  - HAEMOBILIA [None]
  - LISTLESS [None]
  - SEPSIS [None]
  - DIARRHOEA [None]
  - MUSCLE ATROPHY [None]
  - CARDIAC DISORDER [None]
  - FLUID RETENTION [None]
  - ASTHENIA [None]
  - STAPHYLOCOCCAL INFECTION [None]
  - GASTROINTESTINAL INFECTION [None]
  - INTESTINAL HAEMORRHAGE [None]
  - ABDOMINAL DISCOMFORT [None]
  - BLOOD CREATINE PHOSPHOKINASE INCREASED [None]
